FAERS Safety Report 18538486 (Version 1)
Quarter: 2020Q4

REPORT INFORMATION
  Report Type: Spontaneous
  Country: DE (occurrence: DE)
  Receive Date: 20201123
  Receipt Date: 20201123
  Transmission Date: 20210114
  Serious: Yes (Death)
  Sender: FDA-Public Use
  Company Number: DE-ROCHE-2717030

PATIENT
  Age: 63 Year
  Sex: Female

DRUGS (8)
  1. BEVACIZUMAB. [Suspect]
     Active Substance: BEVACIZUMAB
     Indication: BREAST CANCER METASTATIC
     Dosage: WITH PACLITAXEL, FOR 12 WEEKS
     Route: 065
     Dates: start: 2014, end: 2014
  2. BEVACIZUMAB. [Suspect]
     Active Substance: BEVACIZUMAB
     Dosage: WITH EXEMESTAN
     Route: 065
     Dates: start: 2014, end: 2015
  3. EXEMESTAN [Suspect]
     Active Substance: EXEMESTANE
     Indication: BREAST CANCER METASTATIC
     Dosage: WITH BEVACIZUMAB
     Route: 065
     Dates: start: 2014, end: 2015
  4. CAPECITABINE. [Suspect]
     Active Substance: CAPECITABINE
     Indication: BREAST CANCER METASTATIC
     Dosage: FOR FOUR MONTHS
     Route: 048
  5. GEMCITABINE. [Concomitant]
     Active Substance: GEMCITABINE
  6. PACLITAXEL. [Suspect]
     Active Substance: PACLITAXEL
     Indication: BREAST CANCER METASTATIC
     Dosage: WITH BEVACIZUMAB, FOR 12 WEEKS
     Route: 065
     Dates: start: 2014, end: 2014
  7. CARBOPLATIN. [Concomitant]
     Active Substance: CARBOPLATIN
  8. TALAZOPARIB TOSYLATE [Concomitant]
     Active Substance: TALAZOPARIB TOSYLATE
     Dates: start: 2017

REACTIONS (2)
  - Anaemia [Recovered/Resolved]
  - Death [Fatal]

NARRATIVE: CASE EVENT DATE: 2017
